FAERS Safety Report 6070336-X (Version None)
Quarter: 2009Q1

REPORT INFORMATION
  Report Type: 
  Country: None (occurrence: None)
  Receive Date: 20090209
  Receipt Date: 20090129
  Transmission Date: 20090719
  Serious: Yes (Other)
  Sender: FDA-Public Use
  Company Number: GB-TEVA-185032ISR

PATIENT
  Age: 61 Year
  Sex: Female
  Weight: 83 kg

DRUGS (1)
  1. PREDNISOLONE [Suspect]
     Indication: ASTHMA
     Route: 048
     Dates: start: 20081218, end: 20081220

REACTIONS (4)
  - HYPERSENSITIVITY [None]
  - RASH [None]
  - RASH PRURITIC [None]
  - SWELLING FACE [None]
